FAERS Safety Report 12216458 (Version 1)
Quarter: 2016Q1

REPORT INFORMATION
  Report Type: Spontaneous
  Country: US (occurrence: None)
  Receive Date: 20160328
  Receipt Date: 20160328
  Transmission Date: 20160526
  Serious: Yes (Other)
  Sender: FDA-Public Use
  Company Number: None

PATIENT
  Age: 39 Year
  Sex: Female
  Weight: 56.25 kg

DRUGS (2)
  1. MULTIVITAMIN [Concomitant]
     Active Substance: VITAMINS
  2. EXCEDRIN MIGRAINE [Suspect]
     Active Substance: ACETAMINOPHEN\ASPIRIN\CAFFEINE
     Indication: HEADACHE
     Dosage: 30 TABLET(S) TAKEN BY MOUTH
     Route: 048
     Dates: start: 20160101

REACTIONS (5)
  - Tremor [None]
  - Dizziness [None]
  - Presyncope [None]
  - Fear [None]
  - Feeling abnormal [None]

NARRATIVE: CASE EVENT DATE: 20160101
